FAERS Safety Report 4613570-5 (Version None)
Quarter: 2005Q1

REPORT INFORMATION
  Report Type: 
  Country: None (occurrence: None)
  Receive Date: 20050318
  Receipt Date: 20050318
  Transmission Date: 20050727
  Serious: Yes (Hospitalization)
  Sender: FDA-Public Use
  Company Number: None

PATIENT
  Weight: 101.6 kg

DRUGS (1)
  1. LISINOPRIL [Suspect]
     Indication: HYPERTENSION
     Dosage: 20MG  QD
     Dates: start: 20001001, end: 20041101

REACTIONS (2)
  - ANGIONEUROTIC OEDEMA [None]
  - SWELLING FACE [None]
